FAERS Safety Report 7219682-4 (Version None)
Quarter: 2011Q1

REPORT INFORMATION
  Report Type: 
  Country: None (occurrence: None)
  Receive Date: 20110111
  Receipt Date: 20101231
  Transmission Date: 20110831
  Serious: Yes (Other)
  Sender: FDA-Public Use
  Company Number: PHHY2010US89563

PATIENT
  Sex: Female

DRUGS (18)
  1. CLONIDINE HYDROCHLORIDE [Concomitant]
  2. ASPIRIN [Concomitant]
  3. VALTURNA [Suspect]
     Dosage: 1 TABLET (150/160)MG, BID
  4. MURO [Concomitant]
  5. BYSTOLIC [Concomitant]
  6. PILOCARPINE [Concomitant]
  7. POTASSIUM [Concomitant]
  8. LOTEMAX [Concomitant]
  9. COSOPT [Concomitant]
  10. PAXIL [Concomitant]
  11. ALPHAGAN [Concomitant]
  12. NITROGLYCERIN [Concomitant]
  13. PROTONIX [Concomitant]
  14. AZULFIDINE [Concomitant]
  15. PERSANTINE [Concomitant]
  16. RESTASIS [Concomitant]
  17. LUMIGAN [Concomitant]
  18. VIGAMOX [Concomitant]

REACTIONS (1)
  - INTRAOCULAR PRESSURE INCREASED [None]
